FAERS Safety Report 4637486-3 (Version None)
Quarter: 2005Q2

REPORT INFORMATION
  Report Type: 
  Country: None (occurrence: None)
  Receive Date: 20050328
  Receipt Date: 20041201
  Transmission Date: 20051028
  Serious: No
  Sender: FDA-Public Use
  Company Number: USA040463732

PATIENT
  Age: 47 Year
  Sex: Male
  Weight: 109 kg

DRUGS (8)
  1. STRATTERA [Suspect]
     Indication: ATTENTION DEFICIT/HYPERACTIVITY DISORDER
     Dosage: 80 MG IN THE MORNING
     Dates: start: 20040330
  2. LEXAPRO [Concomitant]
  3. DEPAKOTE [Concomitant]
  4. LEVOXYL [Concomitant]
  5. KLONOPIN [Concomitant]
  6. ADVIL [Concomitant]
  7. LORTAB [Concomitant]
  8. DIPHENHYDRAMINE HCL [Concomitant]

REACTIONS (3)
  - BLOOD PRESSURE INCREASED [None]
  - HEADACHE [None]
  - TREMOR [None]
